FAERS Safety Report 14196009 (Version 1)
Quarter: 2017Q4

REPORT INFORMATION
  Report Type: Spontaneous
  Country: US (occurrence: US)
  Receive Date: 20171116
  Receipt Date: 20171116
  Transmission Date: 20180321
  Serious: Yes (Other)
  Sender: FDA-Public Use
  Company Number: US-SA-2017SA223702

PATIENT
  Sex: Female

DRUGS (2)
  1. SOLOSTAR [Suspect]
     Active Substance: DEVICE
  2. LANTUS SOLOSTAR [Suspect]
     Active Substance: INSULIN GLARGINE
     Dosage: DOSE: 50 U IN MORNING AND NIGHT
     Route: 058

REACTIONS (5)
  - Product use issue [Unknown]
  - Thrombosis [Unknown]
  - Limb injury [Unknown]
  - Gait disturbance [Unknown]
  - Intentional product misuse [Unknown]
